FAERS Safety Report 6739640-3 (Version None)
Quarter: 2010Q2

REPORT INFORMATION
  Report Type: 
  Country: None (occurrence: None)
  Receive Date: 20100525
  Receipt Date: 20100326
  Transmission Date: 20101027
  Serious: No
  Sender: FDA-Public Use
  Company Number: US-AMGEN-KDL402318

PATIENT
  Sex: Male
  Weight: 105.3 kg

DRUGS (5)
  1. NPLATE [Suspect]
     Indication: DRUG USE FOR UNKNOWN INDICATION
     Route: 058
     Dates: start: 20100325
  2. AVASTIN [Concomitant]
  3. FOLINIC ACID [Concomitant]
     Dates: start: 20100323
  4. FLUOROURACIL [Concomitant]
     Dates: start: 20100323
  5. OXALIPLATIN [Concomitant]
     Dates: start: 20100323

REACTIONS (2)
  - BONE PAIN [None]
  - PAIN IN EXTREMITY [None]
